FAERS Safety Report 6129440-X (Version None)
Quarter: 2009Q1

REPORT INFORMATION
  Report Type: 
  Country: None (occurrence: None)
  Receive Date: 20090323
  Receipt Date: 20090323
  Transmission Date: 20090719
  Serious: Yes (Other)
  Sender: FDA-Public Use
  Company Number: None

PATIENT
  Age: 41 Year
  Sex: Male
  Weight: 77.1115 kg

DRUGS (1)
  1. VIAGRA [Suspect]
     Indication: ERECTILE DYSFUNCTION
     Dosage: 1/3 TABLET - APPROX 33 MG 1 TIME PER DAY PO OVER THE COURSE OF LAST 4 YRS
     Route: 048

REACTIONS (6)
  - DRUG INTERACTION [None]
  - HEADACHE [None]
  - HEART RATE INCREASED [None]
  - PHOTOPHOBIA [None]
  - PRESYNCOPE [None]
  - VISION BLURRED [None]
